FAERS Safety Report 14226236 (Version 10)
Quarter: 2022Q3

REPORT INFORMATION
  Report Type: Report from Study
  Country: JP (occurrence: JP)
  Receive Date: 20171127
  Receipt Date: 20220922
  Transmission Date: 20221026
  Serious: Yes (Death, Disabling, Other)
  Sender: FDA-Public Use
  Company Number: JP-PFIZER INC-2017507591

PATIENT
  Age: 3 Month
  Sex: Female

DRUGS (16)
  1. SIROLIMUS [Suspect]
     Active Substance: SIROLIMUS
     Indication: Hypoglycaemia
     Dosage: 0.06 MG, 1X/DAY
     Route: 048
     Dates: start: 20161219, end: 20170108
  2. SIROLIMUS [Suspect]
     Active Substance: SIROLIMUS
     Indication: Beckwith-Wiedemann syndrome
  3. DIAZOXIDE [Concomitant]
     Active Substance: DIAZOXIDE
     Indication: Hypoglycaemia
     Dosage: UNK
     Route: 065
  4. DIAZOXIDE [Concomitant]
     Active Substance: DIAZOXIDE
     Indication: Beckwith-Wiedemann syndrome
  5. OCTREOTIDE ACETATE [Concomitant]
     Active Substance: OCTREOTIDE ACETATE
     Indication: Hypoglycaemia
     Dosage: UNK
     Route: 065
  6. GLUCAGON [Concomitant]
     Active Substance: GLUCAGON
     Indication: Hypoglycaemia
     Dosage: UNK
     Route: 065
  7. GLUCAGON [Concomitant]
     Active Substance: GLUCAGON
     Indication: Beckwith-Wiedemann syndrome
  8. GASTROGRAFIN [Concomitant]
     Active Substance: DIATRIZOATE MEGLUMINE\DIATRIZOATE SODIUM
     Indication: Meconium plug syndrome
     Dosage: UNK
     Route: 054
  9. LASIX [Concomitant]
     Active Substance: FUROSEMIDE
     Indication: Beckwith-Wiedemann syndrome
     Dosage: UNK
     Route: 065
  10. SAXIZON [Concomitant]
     Active Substance: HYDROCORTISONE SODIUM SUCCINATE
     Indication: Beckwith-Wiedemann syndrome
     Dosage: UNK
     Route: 065
  11. GASTER [Concomitant]
     Active Substance: FAMOTIDINE
     Indication: Beckwith-Wiedemann syndrome
     Dosage: UNK
     Route: 065
  12. CAFFEINE [Concomitant]
     Active Substance: CAFFEINE
     Indication: Beckwith-Wiedemann syndrome
     Dosage: UNK
     Route: 065
  13. PITRESSIN [Concomitant]
     Active Substance: VASOPRESSIN
     Indication: Beckwith-Wiedemann syndrome
     Dosage: UNK
     Route: 065
  14. MEYLON [Concomitant]
     Active Substance: SODIUM BICARBONATE
     Indication: Beckwith-Wiedemann syndrome
     Dosage: UNK
     Route: 065
  15. BIAPENEM [Concomitant]
     Active Substance: BIAPENEM
     Indication: Beckwith-Wiedemann syndrome
     Dosage: UNK
     Route: 065
  16. VANCOMYCIN [Concomitant]
     Active Substance: VANCOMYCIN
     Indication: Beckwith-Wiedemann syndrome
     Dosage: UNK
     Route: 065

REACTIONS (4)
  - Hepatoblastoma [Fatal]
  - Retroperitoneal abscess [Fatal]
  - Fungaemia [Unknown]
  - Drug ineffective [Unknown]

NARRATIVE: CASE EVENT DATE: 20170224
